FAERS Safety Report 9676277 (Version 1)
Quarter: 2013Q4

REPORT INFORMATION
  Report Type: Spontaneous
  Country: US (occurrence: None)
  Receive Date: 20131106
  Receipt Date: 20131106
  Transmission Date: 20140711
  Serious: Yes (Hospitalization)
  Sender: FDA-Public Use
  Company Number: 2013AP009484

PATIENT
  Age: 53 Year
  Sex: Male

DRUGS (1)
  1. DONEPEZIL HYDROCHLORIDE [Suspect]
     Indication: AMNESIA
     Route: 048

REACTIONS (5)
  - Bradycardia [None]
  - Hyperhidrosis [None]
  - Accidental overdose [None]
  - Confusional state [None]
  - Somnolence [None]
